FAERS Safety Report 7687424-4 (Version None)
Quarter: 2011Q3

REPORT INFORMATION
  Report Type: 
  Country: None (occurrence: None)
  Receive Date: 20110816
  Receipt Date: 20110808
  Transmission Date: 20111222
  Serious: Yes (Hospitalization, Other)
  Sender: FDA-Public Use
  Company Number: PHHY2011JP52994

PATIENT
  Sex: Female
  Weight: 60 kg

DRUGS (9)
  1. EPIRUBICIN HYDROCHLORIDE [Concomitant]
     Dosage: 140 MG, UNK
     Route: 065
     Dates: start: 20070412, end: 20070802
  2. ZOMETA [Suspect]
     Indication: METASTASES TO BONE
     Dosage: 4 MG, UNK
     Route: 041
     Dates: start: 20090422, end: 20110309
  3. FEMARA [Concomitant]
     Indication: BREAST CANCER
     Dosage: 2.5 MG, UNK
     Route: 048
     Dates: start: 20080401, end: 20100901
  4. FLUOROURACIL [Concomitant]
     Dosage: 750 MG, UNK
     Route: 065
     Dates: start: 20070412, end: 20070805
  5. LOSARTAN POTASSIUM [Concomitant]
     Dosage: 50 MEQ/KG, UNK
     Route: 048
     Dates: start: 20070201
  6. PRAVASTATIN SODIUM [Concomitant]
     Dosage: 10 MG, UNK
     Route: 048
     Dates: start: 20070201
  7. NORVASC [Concomitant]
     Dosage: 5 MG, UNK
     Route: 048
     Dates: start: 20070201
  8. ARIMIDEX [Concomitant]
     Indication: BREAST CANCER
     Dosage: 1 MG, UNK
     Route: 048
     Dates: start: 20100922
  9. CYCLOPHOSPHAMIDE [Concomitant]
     Dosage: 700 MG, UNK
     Route: 065
     Dates: start: 20070412, end: 20070802

REACTIONS (8)
  - OSTEOMYELITIS [None]
  - OSTEONECROSIS OF JAW [None]
  - ORAL DISORDER [None]
  - TOOTHACHE [None]
  - ERYTHEMA [None]
  - TOOTH DISORDER [None]
  - PAIN [None]
  - SWELLING [None]
